FAERS Safety Report 24277285 (Version 1)
Quarter: 2024Q3

REPORT INFORMATION
  Report Type: Spontaneous
  Country: US (occurrence: US)
  Receive Date: 20240903
  Receipt Date: 20240903
  Transmission Date: 20241016
  Serious: Yes (Other)
  Sender: MLV PHARMA
  Company Number: US-MPL-000058

PATIENT
  Age: 37 Year
  Sex: Male
  Weight: 70 kg

DRUGS (29)
  1. MIDAZOLAM [Concomitant]
     Active Substance: MIDAZOLAM
     Indication: Analgesic therapy
     Route: 065
  2. MIDAZOLAM [Concomitant]
     Active Substance: MIDAZOLAM
     Indication: Analgesic therapy
     Dosage: HIGH DOSE INFUSIONS
     Route: 065
  3. MIDAZOLAM [Concomitant]
     Active Substance: MIDAZOLAM
     Indication: Sedation
     Route: 065
  4. MIDAZOLAM [Concomitant]
     Active Substance: MIDAZOLAM
     Indication: Sedation
     Dosage: HIGH DOSE INFUSIONS
     Route: 065
  5. MIDAZOLAM [Concomitant]
     Active Substance: MIDAZOLAM
     Indication: Myasthenia gravis crisis
     Route: 065
  6. MIDAZOLAM [Concomitant]
     Active Substance: MIDAZOLAM
     Indication: Myasthenia gravis crisis
     Dosage: HIGH DOSE INFUSIONS
     Route: 065
  7. ETOMIDATE [Concomitant]
     Active Substance: ETOMIDATE
     Indication: Myasthenia gravis crisis
     Route: 065
  8. FENTANYL [Concomitant]
     Active Substance: FENTANYL\FENTANYL CITRATE
     Indication: Analgesic therapy
     Dosage: FENTANYL HIGH DOSE INFUSIONS
     Route: 065
  9. FENTANYL [Concomitant]
     Active Substance: FENTANYL\FENTANYL CITRATE
     Indication: Sedation
     Dosage: FENTANYL HIGH DOSE INFUSIONS
     Route: 065
  10. DEXMEDETOMIDINE [Concomitant]
     Active Substance: DEXMEDETOMIDINE
     Indication: Sedation
     Dosage: DEXMEDETOMIDINE HIGH DOSE INFUSIONS
     Route: 065
  11. DEXMEDETOMIDINE [Concomitant]
     Active Substance: DEXMEDETOMIDINE
     Indication: Analgesic therapy
     Dosage: DEXMEDETOMIDINE HIGH DOSE INFUSIONS
     Route: 065
  12. PROPOFOL [Concomitant]
     Active Substance: PROPOFOL
     Indication: Analgesic therapy
     Dosage: PROPOFOL HIGH DOSE INFUSION
     Route: 065
  13. PROPOFOL [Concomitant]
     Active Substance: PROPOFOL
     Indication: Sedation
     Dosage: PROPOFOL HIGH DOSE INFUSION
     Route: 065
  14. PREDNISONE [Concomitant]
     Active Substance: PREDNISONE
     Indication: Myasthenia gravis
     Route: 048
  15. ROCURONIUM BROMIDE [Concomitant]
     Active Substance: ROCURONIUM BROMIDE
     Indication: Myasthenia gravis crisis
     Route: 065
  16. METHYLPREDNISOLONE [Concomitant]
     Active Substance: METHYLPREDNISOLONE
     Indication: Myasthenia gravis crisis
     Dosage: 125 MG IV ONCE
     Route: 042
  17. METHYLPREDNISOLONE [Concomitant]
     Active Substance: METHYLPREDNISOLONE
     Indication: Myasthenia gravis crisis
     Route: 042
  18. PYRIDOSTIGMINE BROMIDE [Suspect]
     Active Substance: PYRIDOSTIGMINE BROMIDE
     Indication: Myasthenia gravis
     Route: 065
  19. PYRIDOSTIGMINE BROMIDE [Suspect]
     Active Substance: PYRIDOSTIGMINE BROMIDE
     Indication: Myasthenia gravis
     Dosage: AT 02:00, 05:00, 08:00, 11:00, 14:00, 17:00, 20:00, 23:00 ON DAY 1
     Route: 042
  20. PYRIDOSTIGMINE BROMIDE [Suspect]
     Active Substance: PYRIDOSTIGMINE BROMIDE
     Indication: Myasthenia gravis
     Dosage: AT 02:00, 05:00, 08:00, 11:00, 14:00, 17:00, 20:00 ON DAY 3
     Route: 042
  21. PYRIDOSTIGMINE BROMIDE [Suspect]
     Active Substance: PYRIDOSTIGMINE BROMIDE
     Indication: Myasthenia gravis
     Dosage: AT 02:00 06:00, 10:00, 14:00 18:00, 22:00 ON DAY 4
     Route: 065
  22. PYRIDOSTIGMINE BROMIDE [Suspect]
     Active Substance: PYRIDOSTIGMINE BROMIDE
     Indication: Myasthenia gravis
     Dosage: 120 MG AT 06:00, 10:00, 14:00, 18:00, 90 MG AT 22:00, 02:00 ON DAY 9
     Route: 048
  23. PYRIDOSTIGMINE BROMIDE [Suspect]
     Active Substance: PYRIDOSTIGMINE BROMIDE
     Indication: Myasthenia gravis
     Dosage: 120 MG AT 06:00, 10:00, 14:00, 18:00, 90 MG AT 22:00, 02:00
     Route: 048
  24. PYRIDOSTIGMINE BROMIDE [Suspect]
     Active Substance: PYRIDOSTIGMINE BROMIDE
     Indication: Myasthenia gravis crisis
     Route: 065
  25. PYRIDOSTIGMINE BROMIDE [Suspect]
     Active Substance: PYRIDOSTIGMINE BROMIDE
     Indication: Myasthenia gravis crisis
     Dosage: AT 02:00, 05:00, 08:00, 11:00, 14:00, 17:00, 20:00, 23:00 ON DAY 1
     Route: 042
  26. PYRIDOSTIGMINE BROMIDE [Suspect]
     Active Substance: PYRIDOSTIGMINE BROMIDE
     Indication: Myasthenia gravis crisis
     Dosage: AT 02:00, 05:00, 08:00, 11:00, 14:00, 17:00, 20:00 ON DAY 3
     Route: 042
  27. PYRIDOSTIGMINE BROMIDE [Suspect]
     Active Substance: PYRIDOSTIGMINE BROMIDE
     Indication: Myasthenia gravis crisis
     Dosage: AT 02:00 06:00, 10:00, 14:00 18:00, 22:00 ON DAY 4
     Route: 065
  28. PYRIDOSTIGMINE BROMIDE [Suspect]
     Active Substance: PYRIDOSTIGMINE BROMIDE
     Indication: Myasthenia gravis crisis
     Dosage: 120 MG AT 06:00, 10:00, 14:00, 18:00, 90 MG AT 22:00, 02:00 ON DAY 9
     Route: 048
  29. PYRIDOSTIGMINE BROMIDE [Suspect]
     Active Substance: PYRIDOSTIGMINE BROMIDE
     Indication: Myasthenia gravis crisis
     Dosage: 120 MG AT 06:00, 10:00, 14:00, 18:00, 90 MG AT 22:00, 02:00
     Route: 048

REACTIONS (3)
  - Blood bromide increased [Recovered/Resolved]
  - Agitation [Recovered/Resolved]
  - Aggression [Recovered/Resolved]
